FAERS Safety Report 12863145 (Version 3)
Quarter: 2017Q1

REPORT INFORMATION
  Report Type: Spontaneous
  Country: US (occurrence: US)
  Receive Date: 20161019
  Receipt Date: 20170324
  Transmission Date: 20170428
  Serious: Yes (Other)
  Sender: FDA-Public Use
  Company Number: US-OTSUKA-2016_023797

PATIENT
  Age: 38 Year
  Sex: Female
  Weight: 97.51 kg

DRUGS (5)
  1. REXULTI [Suspect]
     Active Substance: BREXPIPRAZOLE
     Dosage: 1.5 MG, QHS (1 AND A HALF TABLET AT BEDTIME)
     Route: 065
     Dates: start: 20160517
  2. REXULTI [Suspect]
     Active Substance: BREXPIPRAZOLE
     Indication: MAJOR DEPRESSION
     Dosage: 0.375 MG, QHS (1 AND A HALF TABLET AT BEDTIME)
     Route: 065
     Dates: start: 20160322
  3. REXULTI [Suspect]
     Active Substance: BREXPIPRAZOLE
     Indication: ADJUVANT THERAPY
     Dosage: 1.5 MG, QHS (1 AND A HALF TABLET AT BEDTIME)
     Route: 065
     Dates: start: 20160419
  4. REXULTI [Suspect]
     Active Substance: BREXPIPRAZOLE
     Dosage: UNK
     Route: 065
     Dates: end: 20160809
  5. REXULTI [Suspect]
     Active Substance: BREXPIPRAZOLE
     Dosage: 1.5 MG, QHS (1 AND A HALF TABLET AT BEDTIME)
     Route: 065
     Dates: start: 20160621

REACTIONS (2)
  - Wrong technique in product usage process [Unknown]
  - Galactorrhoea [Recovered/Resolved]

NARRATIVE: CASE EVENT DATE: 20160322
